FAERS Safety Report 5369546-6 (Version None)
Quarter: 2007Q2

REPORT INFORMATION
  Report Type: 
  Country: None (occurrence: None)
  Receive Date: 20070625
  Receipt Date: 20070611
  Transmission Date: 20071010
  Serious: Yes (Death, Other)
  Sender: FDA-Public Use
  Company Number: B0475524A

PATIENT
  Age: 26 Year
  Sex: Female
  Weight: 68.2 kg

DRUGS (11)
  1. KADIAN [Suspect]
     Indication: DRUG USE FOR UNKNOWN INDICATION
     Dates: end: 20060915
  2. HYDROMORPHONE HCL [Suspect]
     Indication: DRUG USE FOR UNKNOWN INDICATION
     Dates: end: 20060915
  3. TRAZODONE HCL [Suspect]
     Indication: DRUG USE FOR UNKNOWN INDICATION
     Dates: end: 20060915
  4. FLUOXETINE [Suspect]
     Indication: DRUG USE FOR UNKNOWN INDICATION
     Dates: end: 20060915
  5. DIPHENHYDRAMINE HCL [Suspect]
     Indication: DRUG USE FOR UNKNOWN INDICATION
     Dates: end: 20060915
  6. ACETAMINOPHEN [Suspect]
     Indication: DRUG USE FOR UNKNOWN INDICATION
     Dates: end: 20060915
  7. HYDROXYZINE [Concomitant]
     Dates: end: 20060915
  8. NICOTINE [Concomitant]
     Dates: end: 20060915
  9. CAFFEINE [Concomitant]
     Dates: end: 20060915
  10. ANTI HYPERTENSIVE [Concomitant]
     Dates: end: 20060901
  11. METHAMPHETAMINE HYDROCHLORIDE [Concomitant]

REACTIONS (9)
  - ACCIDENTAL DEATH [None]
  - DRUG DEPENDENCE [None]
  - DRUG TOXICITY [None]
  - FOAMING AT MOUTH [None]
  - IMPRISONMENT [None]
  - NERVOUS SYSTEM DISORDER [None]
  - PULMONARY OEDEMA [None]
  - SELF-MEDICATION [None]
  - THEFT [None]
